FAERS Safety Report 7029310-9 (Version None)
Quarter: 2010Q4

REPORT INFORMATION
  Report Type: 
  Country: None (occurrence: None)
  Receive Date: 20101005
  Receipt Date: 20100928
  Transmission Date: 20110411
  Serious: Yes (Life-Threatening)
  Sender: FDA-Public Use
  Company Number: PT-WYE-G06467810

PATIENT
  Sex: Female

DRUGS (1)
  1. PIPERACILLIN AND TAZOBACTAM [Suspect]

REACTIONS (3)
  - ABDOMINAL PAIN [None]
  - ACCIDENTAL EXPOSURE [None]
  - ANAPHYLACTIC REACTION [None]
